FAERS Safety Report 15644041 (Version 1)
Quarter: 2018Q4

REPORT INFORMATION
  Report Type: Spontaneous
  Country: ZA (occurrence: ZA)
  Receive Date: 20181121
  Receipt Date: 20181121
  Transmission Date: 20190205
  Serious: Yes (Hospitalization)
  Sender: FDA-Public Use
  Company Number: ZA-PFIZER INC-2018474111

PATIENT
  Age: 76 Year
  Sex: Male

DRUGS (10)
  1. ESCITALOPRAM [Suspect]
     Active Substance: ESCITALOPRAM OXALATE
     Dosage: 10 MG, UNK
  2. ADCO-SIMVASTATIN [Suspect]
     Active Substance: SIMVASTATIN
     Dosage: 20 MG, UNK
  3. VIMOVO [Suspect]
     Active Substance: ESOMEPRAZOLE MAGNESIUM\NAPROXEN
     Dosage: 500/20 MG, UNK
  4. PEARINDA PLUS [Suspect]
     Active Substance: INDAPAMIDE\PERINDOPRIL
     Dosage: 4/1.25 MG, UNK
  5. ECOTRIN [Suspect]
     Active Substance: ASPIRIN
     Dosage: 81 MG, UNK
  6. TREPILINE [AMITRIPTYLINE] [Suspect]
     Active Substance: AMITRIPTYLINE
     Dosage: 25 MG, UNK
  7. ARCOXIA [Suspect]
     Active Substance: ETORICOXIB
     Dosage: 90 MG, UNK
  8. AZOMID [Suspect]
     Active Substance: ACETAZOLAMIDE
     Dosage: 250 MG, UNK
  9. IPVENT [Suspect]
     Active Substance: IPRATROPIUM BROMIDE
     Dosage: 40 UG, UNK
  10. XANOR [Suspect]
     Active Substance: ALPRAZOLAM
     Dosage: 0.25 MG, UNK

REACTIONS (1)
  - Pneumothorax [Unknown]
